FAERS Safety Report 18898394 (Version 1)
Quarter: 2021Q1

REPORT INFORMATION
  Report Type: Spontaneous
  Country: GB (occurrence: GB)
  Receive Date: 20210216
  Receipt Date: 20210216
  Transmission Date: 20210420
  Serious: No
  Sender: FDA-Public Use
  Company Number: GB-ALKEM LABORATORIES LIMITED-GB-ALKEM-2020-08441

PATIENT
  Age: 50 Year
  Sex: Female

DRUGS (7)
  1. AMITRIPTYLINE [Suspect]
     Active Substance: AMITRIPTYLINE
     Indication: PRODUCT USED FOR UNKNOWN INDICATION
     Dosage: 50 MICROGRAM
     Route: 065
  2. BUTEC [Suspect]
     Active Substance: BUPRENORPHINE
     Indication: PRODUCT USED FOR UNKNOWN INDICATION
     Dosage: 5 MCG, (EVERY 1 HOUR) [STRENGTH 5MG]
     Route: 062
     Dates: start: 20200519
  3. CO?DYDRAMOL [Suspect]
     Active Substance: ACETAMINOPHEN\DIHYDROCODEINE
     Indication: PRODUCT USED FOR UNKNOWN INDICATION
     Dosage: UNK
     Route: 065
  4. PREGABALIN. [Suspect]
     Active Substance: PREGABALIN
     Indication: PRODUCT USED FOR UNKNOWN INDICATION
     Dosage: 50 MILLIGRAM
     Route: 065
  5. BUTEC [Suspect]
     Active Substance: BUPRENORPHINE
     Dosage: 15 MICROGRAM (EVERY 1 HOUR)
     Route: 062
     Dates: start: 20200901
  6. BUTEC [Suspect]
     Active Substance: BUPRENORPHINE
     Dosage: 10 MICROGRAM (EVERY 1 HOUR)
     Route: 062
     Dates: start: 20200707
  7. BUTEC [Suspect]
     Active Substance: BUPRENORPHINE
     Dosage: 15 MICROGRAM (EVERY 1 HOUR)
     Route: 062

REACTIONS (3)
  - Dermatitis [Unknown]
  - Skin exfoliation [Unknown]
  - Erythema [Unknown]

NARRATIVE: CASE EVENT DATE: 20200929
